FAERS Safety Report 21090588 (Version 1)
Quarter: 2022Q3

REPORT INFORMATION
  Report Type: Spontaneous
  Country: US (occurrence: US)
  Receive Date: 20220715
  Receipt Date: 20220715
  Transmission Date: 20221026
  Serious: Yes (Death, Other)
  Sender: FDA-Public Use
  Company Number: US-SA-SAC20220715000801

PATIENT
  Age: 69 Year
  Sex: Male

DRUGS (1)
  1. ZANTAC [Suspect]
     Active Substance: RANITIDINE HYDROCHLORIDE
     Indication: Dyspepsia
     Dosage: 150 MG FREQUENCY: OCCASIONAL
     Route: 065
     Dates: start: 200901, end: 201601

REACTIONS (2)
  - Haematological malignancy [Fatal]
  - Lymphoma [Fatal]

NARRATIVE: CASE EVENT DATE: 20170101
